FAERS Safety Report 9839139 (Version 2)
Quarter: 2014Q2

REPORT INFORMATION
  Report Type: Spontaneous
  Country: SE (occurrence: SE)
  Receive Date: 20140123
  Receipt Date: 20140527
  Transmission Date: 20141212
  Serious: Yes (Other)
  Sender: FDA-Public Use
  Company Number: SE-ACTAVIS-2014-00657

PATIENT
  Age: 29 Year
  Sex: Male

DRUGS (2)
  1. MIRTAZAPIN ACTAVIS [Suspect]
     Indication: ANXIETY
     Dosage: UNK
     Route: 065
  2. MIRTAZAPIN ACTAVIS [Suspect]
     Indication: DEPRESSION

REACTIONS (5)
  - Confusional state [Recovered/Resolved]
  - Somnolence [Recovered/Resolved]
  - Dizziness [Recovered/Resolved]
  - Restlessness [Recovered/Resolved]
  - Restless legs syndrome [Recovered/Resolved]
